FAERS Safety Report 7335125-4 (Version None)
Quarter: 2011Q1

REPORT INFORMATION
  Report Type: 
  Country: None (occurrence: None)
  Receive Date: 20110307
  Receipt Date: 20110208
  Transmission Date: 20110831
  Serious: No
  Sender: FDA-Public Use
  Company Number: US-B.I. PHARMACEUTICALS,INC./RIDGEFIELD-2011-BP-04487BP

PATIENT
  Sex: Female

DRUGS (9)
  1. HYDROCODONE BITARTRATE [Suspect]
     Indication: LIGAMENT RUPTURE
  2. ASPIRIN [Concomitant]
     Indication: PROPHYLAXIS
  3. PRADAXA [Suspect]
     Indication: ATRIAL FIBRILLATION
     Dosage: 300 MG
     Route: 048
     Dates: start: 20110202
  4. DIAZEPAM [Concomitant]
     Indication: ANXIETY
  5. LIPITOR [Concomitant]
     Indication: BLOOD CHOLESTEROL INCREASED
  6. FISH OIL [Concomitant]
     Indication: PROPHYLAXIS
  7. ZOLOFT [Concomitant]
     Indication: ANXIETY
  8. TOPROL-XL [Concomitant]
     Indication: ATRIAL FIBRILLATION
  9. LORAZEPAM [Concomitant]
     Indication: RESTLESS LEGS SYNDROME

REACTIONS (3)
  - EPISTAXIS [None]
  - RECTAL HAEMORRHAGE [None]
  - CONSTIPATION [None]
